FAERS Safety Report 8477201-9 (Version None)
Quarter: 2012Q2

REPORT INFORMATION
  Report Type: 
  Country: None (occurrence: None)
  Receive Date: 20120619
  Receipt Date: 20120524
  Transmission Date: 20120825
  Serious: Yes (Hospitalization, Other)
  Sender: FDA-Public Use
  Company Number: DSA_57901_2012

PATIENT

DRUGS (3)
  1. MACUGEN [Suspect]
     Indication: DIABETIC RETINAL OEDEMA
     Dosage: DF, DF, DF
     Dates: start: 20090622, end: 20090622
  2. MACUGEN [Suspect]
     Indication: DIABETIC RETINAL OEDEMA
     Dosage: DF, DF, DF
     Dates: start: 20080905, end: 20080905
  3. MACUGEN [Suspect]
     Indication: DIABETIC RETINAL OEDEMA
     Dosage: DF, DF, DF
     Dates: start: 20090330, end: 20090330

REACTIONS (3)
  - OFF LABEL USE [None]
  - APHASIA [None]
  - CEREBROVASCULAR ACCIDENT [None]
